FAERS Safety Report 7223757-3 (Version None)
Quarter: 2011Q1

REPORT INFORMATION
  Report Type: 
  Country: None (occurrence: None)
  Receive Date: 20110112
  Receipt Date: 20101203
  Transmission Date: 20110831
  Serious: No
  Sender: FDA-Public Use
  Company Number: US-ALLERGAN-1014754US

PATIENT
  Age: 89 Year
  Sex: Female

DRUGS (3)
  1. RESTASIS [Suspect]
     Indication: DRY EYE
     Dosage: 1 GTT, BID
     Route: 047
     Dates: start: 20100913
  2. CLEARTUBE [Concomitant]
     Indication: EYE LUBRICATION THERAPY
     Dosage: UNK
  3. RESTASIS [Suspect]
     Dosage: 1 GTT, UNK

REACTIONS (8)
  - VISION BLURRED [None]
  - EYE IRRITATION [None]
  - EYELID PAIN [None]
  - EYE PAIN [None]
  - FOREIGN BODY SENSATION IN EYES [None]
  - HEADACHE [None]
  - ERYTHEMA OF EYELID [None]
  - LACRIMATION INCREASED [None]
